FAERS Safety Report 9660845 (Version 1)
Quarter: 2013Q4

REPORT INFORMATION
  Report Type: Spontaneous
  Country: US (occurrence: US)
  Receive Date: 20131031
  Receipt Date: 20131031
  Transmission Date: 20140711
  Serious: Yes (Other)
  Sender: FDA-Public Use
  Company Number: US-ASTRAZENECA-2013SE78378

PATIENT
  Age: 573 Month
  Sex: Male

DRUGS (1)
  1. BRILINTA [Suspect]
     Indication: ACUTE MYOCARDIAL INFARCTION
     Route: 048
     Dates: start: 20131020

REACTIONS (2)
  - Coronary artery thrombosis [Recovered/Resolved]
  - Coronary artery dissection [Recovered/Resolved]
